FAERS Safety Report 4866063-4 (Version None)
Quarter: 2005Q4

REPORT INFORMATION
  Report Type: 
  Country: None (occurrence: None)
  Receive Date: 20051221
  Receipt Date: 20051215
  Transmission Date: 20060501
  Serious: Yes (Death, Hospitalization)
  Sender: FDA-Public Use
  Company Number: FRWYE210206DEC05

PATIENT
  Age: 72 Year
  Sex: Male

DRUGS (1)
  1. BISOPROLOL FUMARATE [Suspect]
     Route: 048
     Dates: end: 20051101

REACTIONS (11)
  - BALANCE DISORDER [None]
  - FALL [None]
  - GENERAL PHYSICAL HEALTH DETERIORATION [None]
  - HYPOCALCAEMIA [None]
  - INTESTINAL OBSTRUCTION [None]
  - KLEBSIELLA SEPSIS [None]
  - METASTASES TO SPINE [None]
  - PANCYTOPENIA [None]
  - RENAL FAILURE ACUTE [None]
  - RHABDOMYOLYSIS [None]
  - TUMOUR INVASION [None]
